FAERS Safety Report 5662460-8 (Version None)
Quarter: 2008Q1

REPORT INFORMATION
  Report Type: 
  Country: None (occurrence: None)
  Receive Date: 20080313
  Receipt Date: 20080307
  Transmission Date: 20080703
  Serious: Yes (Other)
  Sender: FDA-Public Use
  Company Number: PHHY2008JP02296

PATIENT
  Age: 51 Year
  Sex: Male

DRUGS (7)
  1. CYCLOSPORINE [Suspect]
     Indication: BONE MARROW TRANSPLANT
  2. METHOTREXATE [Suspect]
     Indication: BONE MARROW TRANSPLANT
  3. CELLCEPT [Concomitant]
     Indication: BONE MARROW TRANSPLANT
     Route: 048
  4. MELPHALAN [Concomitant]
  5. RADIOTHERAPY [Concomitant]
  6. ADRENOCORTICOTROPHIC HORMONE [Concomitant]
  7. STEROIDS NOS [Concomitant]

REACTIONS (14)
  - ACUTE GRAFT VERSUS HOST DISEASE [None]
  - BIOPSY LUNG ABNORMAL [None]
  - CHEST X-RAY ABNORMAL [None]
  - CHRONIC GRAFT VERSUS HOST DISEASE [None]
  - COUGH [None]
  - CRYPTOGENIC ORGANISING PNEUMONIA [None]
  - DYSKINESIA [None]
  - GAIT DISTURBANCE [None]
  - INFECTION IN AN IMMUNOCOMPROMISED HOST [None]
  - MUSCULAR WEAKNESS [None]
  - MYOKYMIA [None]
  - NEPHRITIS INTERSTITIAL [None]
  - RENAL IMPAIRMENT [None]
  - SEPSIS [None]
